FAERS Safety Report 14428971 (Version 1)
Quarter: 2018Q1

REPORT INFORMATION
  Report Type: Spontaneous
  Country: US (occurrence: US)
  Receive Date: 20180123
  Receipt Date: 20180123
  Transmission Date: 20180509
  Serious: No
  Sender: FDA-Public Use
  Company Number: None

PATIENT
  Age: 25 Year
  Sex: Female

DRUGS (23)
  1. CIMZIA [Suspect]
     Active Substance: CERTOLIZUMAB PEGOL
     Indication: CROHN^S DISEASE
     Dosage: 400MG Q4 WEEKS SQ
     Route: 058
     Dates: start: 20171125
  2. HYDROMET [Concomitant]
     Active Substance: HOMATROPINE METHYLBROMIDE\HYDROCODONE BITARTRATE
  3. PREDNISONE. [Concomitant]
     Active Substance: PREDNISONE
  4. BUDESONIDE. [Concomitant]
     Active Substance: BUDESONIDE
  5. DICLOFENAC [Concomitant]
     Active Substance: DICLOFENAC
  6. TRAMADOL. [Concomitant]
     Active Substance: TRAMADOL
  7. HYOSCAMINE [Concomitant]
  8. AMOXICILLIN. [Concomitant]
     Active Substance: AMOXICILLIN
  9. AZITHROMYCIN ANHYDROUS. [Concomitant]
     Active Substance: AZITHROMYCIN ANHYDROUS
  10. METHOCARBAM [Concomitant]
  11. TRINESSA [Concomitant]
     Active Substance: ETHINYL ESTRADIOL\NORGESTIMATE
  12. LANSOPRAZOLE. [Concomitant]
     Active Substance: LANSOPRAZOLE
  13. PROAIR HFA [Concomitant]
     Active Substance: ALBUTEROL SULFATE
  14. FLUCINONIDE [Concomitant]
  15. POLYETHYL GLYCOL [Concomitant]
  16. PROMETHAZINE [Concomitant]
     Active Substance: PROMETHAZINE\PROMETHAZINE HYDROCHLORIDE
  17. XIFAXAN [Concomitant]
     Active Substance: RIFAXIMIN
  18. OXYCODONE [Concomitant]
     Active Substance: OXYCODONE
  19. RANITIDINE. [Concomitant]
     Active Substance: RANITIDINE
  20. NUVARING [Concomitant]
     Active Substance: ETHINYL ESTRADIOL\ETONOGESTREL
  21. ONDASERTRON [Concomitant]
  22. SUPREP BOWEL SOL [Concomitant]
  23. LUTERA [Concomitant]
     Active Substance: ETHINYL ESTRADIOL\LEVONORGESTREL

REACTIONS (1)
  - Rash [None]

NARRATIVE: CASE EVENT DATE: 20180122
